FAERS Safety Report 24801939 (Version 1)
Quarter: 2025Q1

REPORT INFORMATION
  Report Type: Report from Study
  Country: CA (occurrence: CA)
  Receive Date: 20250102
  Receipt Date: 20250102
  Transmission Date: 20250409
  Serious: Yes (Other)
  Sender: ABBVIE
  Company Number: CA-ABBVIE-6068147

PATIENT
  Age: 42 Year
  Sex: Male

DRUGS (1)
  1. SKYRIZI [Suspect]
     Active Substance: RISANKIZUMAB-RZAA
     Indication: Psoriasis
     Dosage: DRUG END DATE 2024
     Route: 058
     Dates: start: 20240528

REACTIONS (2)
  - Neoplasm malignant [Unknown]
  - Device issue [Unknown]

NARRATIVE: CASE EVENT DATE: 20240101
